FAERS Safety Report 6994672-5 (Version None)
Quarter: 2010Q3

REPORT INFORMATION
  Report Type: 
  Country: None (occurrence: None)
  Receive Date: 20100915
  Receipt Date: 20100903
  Transmission Date: 20110219
  Serious: Yes (Hospitalization)
  Sender: FDA-Public Use
  Company Number: 2010EN000255

PATIENT
  Age: 45 Year
  Sex: Male

DRUGS (8)
  1. ONCASPAR [Suspect]
     Indication: ACUTE LYMPHOCYTIC LEUKAEMIA
     Dosage: 6125 IU;X1 ;IV
     Route: 042
     Dates: start: 20100726, end: 20100726
  2. DOXORUBICIN HCL [Suspect]
     Indication: ACUTE LYMPHOCYTIC LEUKAEMIA
     Dosage: 73.5 MG;QD;IV
     Route: 042
     Dates: start: 20100723, end: 20100724
  3. VINCRISTINE [Concomitant]
     Indication: ACUTE LYMPHOCYTIC LEUKAEMIA
     Dosage: 2 MG;QW;IV
     Route: 042
     Dates: start: 20100723, end: 20100806
  4. METHYLPREDNISOLONE [Suspect]
     Indication: ACUTE LYMPHOCYTIC LEUKAEMIA
     Dosage: 2 MG;QW;IV
     Route: 042
     Dates: start: 20100723, end: 20100725
  5. PREDNISONE [Suspect]
     Indication: ACUTE LYMPHOCYTIC LEUKAEMIA
     Dosage: 40 MG/M2;QD;PO
     Route: 048
     Dates: start: 20100725, end: 20100820
  6. CYTARABINE [Concomitant]
     Indication: ACUTE LYMPHOCYTIC LEUKAEMIA
     Dosage: 50 MG;X1;IV
     Route: 042
     Dates: start: 20100720, end: 20100722
  7. METHOTREXATE [Suspect]
     Indication: ACUTE LYMPHOCYTIC LEUKAEMIA
     Dosage: 98 MG;X1;IV, 12 MG X1;INTH
     Dates: start: 20100725, end: 20100725
  8. METHOTREXATE [Suspect]
     Indication: ACUTE LYMPHOCYTIC LEUKAEMIA
     Dosage: 98 MG;X1;IV, 12 MG X1;INTH
     Dates: start: 20100820, end: 20100820

REACTIONS (8)
  - ASPERGILLOSIS [None]
  - EMPYEMA [None]
  - PLEURAL EFFUSION [None]
  - PNEUMOTHORAX [None]
  - PULMONARY EMBOLISM [None]
  - PULMONARY INFARCTION [None]
  - PULMONARY NECROSIS [None]
  - PYREXIA [None]
